FAERS Safety Report 20120898 (Version 1)
Quarter: 2021Q4

REPORT INFORMATION
  Report Type: Report from Study
  Country: CA (occurrence: CA)
  Receive Date: 20211127
  Receipt Date: 20211127
  Transmission Date: 20220303
  Serious: Yes (Hospitalization)
  Sender: FDA-Public Use
  Company Number: CA-ABBVIE-21K-028-4176373-00

PATIENT
  Sex: Female

DRUGS (6)
  1. RINVOQ [Suspect]
     Active Substance: UPADACITINIB
     Indication: Rheumatoid arthritis
     Route: 048
     Dates: start: 20210605, end: 2021
  2. RINVOQ [Suspect]
     Active Substance: UPADACITINIB
     Route: 048
     Dates: start: 2021, end: 2021
  3. RINVOQ [Suspect]
     Active Substance: UPADACITINIB
     Route: 048
     Dates: start: 2021, end: 202110
  4. COVID-19 VACCINE [Concomitant]
     Indication: COVID-19 immunisation
     Route: 030
     Dates: start: 2021, end: 2021
  5. COVID-19 VACCINE [Concomitant]
     Indication: COVID-19 prophylaxis
     Route: 030
     Dates: start: 2021, end: 2021
  6. COVID-19 VACCINE [Concomitant]
     Route: 030
     Dates: start: 202110, end: 202110

REACTIONS (3)
  - Paronychia [Unknown]
  - Ingrowing nail [Unknown]
  - Asthenia [Unknown]

NARRATIVE: CASE EVENT DATE: 20210101
